FAERS Safety Report 19216092 (Version 2)
Quarter: 2021Q2

REPORT INFORMATION
  Report Type: Spontaneous
  Country: US (occurrence: US)
  Receive Date: 20210505
  Receipt Date: 20210614
  Transmission Date: 20210717
  Serious: No
  Sender: FDA-Public Use
  Company Number: US-SA-2021SA146484

PATIENT
  Age: 62 Year
  Sex: Male
  Weight: 78 kg

DRUGS (19)
  1. FINASTERIDE. [Concomitant]
     Active Substance: FINASTERIDE
  2. CIALIS [Concomitant]
     Active Substance: TADALAFIL
  3. ASPIRIN [ACETYLSALICYLIC ACID] [Concomitant]
     Active Substance: ASPIRIN
  4. STOOL SOFTENER (DOCUSATE) [Concomitant]
     Active Substance: DOCUSATE
  5. LOSARTAN. [Concomitant]
     Active Substance: LOSARTAN
  6. FABRAZYME [Suspect]
     Active Substance: AGALSIDASE BETA
     Indication: LIPIDOSIS
  7. MODERNA COVID?19 VACCINE [Suspect]
     Active Substance: CX-024414
     Indication: COVID-19 IMMUNISATION
     Dosage: UNK
  8. BACTRIM [Concomitant]
     Active Substance: SULFAMETHOXAZOLE\TRIMETHOPRIM
  9. FABRAZYME [Suspect]
     Active Substance: AGALSIDASE BETA
     Indication: FABRY^S DISEASE
     Dosage: 80 MG
     Route: 041
     Dates: start: 20170202
  10. VITAMIN D3 [Concomitant]
     Active Substance: CHOLECALCIFEROL
  11. CIALIS [Concomitant]
     Active Substance: TADALAFIL
  12. METOPROLOL. [Concomitant]
     Active Substance: METOPROLOL
  13. MIRALAX [Concomitant]
     Active Substance: POLYETHYLENE GLYCOL 3350
  14. STERILE WATER [Concomitant]
     Active Substance: WATER
  15. CALCIUM [Concomitant]
     Active Substance: CALCIUM
  16. MULTIVITAMINS [VITAMINS NOS] [Concomitant]
     Active Substance: VITAMINS
  17. AMITRIPTYLINE [Concomitant]
     Active Substance: AMITRIPTYLINE
  18. NORMAL SALINE [Concomitant]
     Active Substance: SODIUM CHLORIDE
  19. MAGNESIUM [Concomitant]
     Active Substance: MAGNESIUM

REACTIONS (3)
  - Headache [Unknown]
  - Left ventricular hypertrophy [Unknown]
  - Fatigue [Unknown]

NARRATIVE: CASE EVENT DATE: 20210416
